FAERS Safety Report 4525851-4 (Version None)
Quarter: 2004Q4

REPORT INFORMATION
  Report Type: 
  Country: None (occurrence: None)
  Receive Date: 20041124
  Receipt Date: 20040308
  Transmission Date: 20050328
  Serious: Yes (Hospitalization)
  Sender: FDA-Public Use
  Company Number: 2003121689

PATIENT
  Age: 47 Year
  Sex: Female
  Weight: 60.782 kg

DRUGS (4)
  1. TIKOSYN [Suspect]
     Indication: ATRIAL FIBRILLATION
     Dosage: 1000 MCG (BID), ORAL
     Route: 048
     Dates: start: 20030101
  2. CYANOCOBALAMIN (CYANOCOBALAMIN) [Concomitant]
  3. ESTROGEN NOS (ESTROGEN NOS) [Concomitant]
  4. POTASSIUM ACETATE [Concomitant]

REACTIONS (7)
  - ADVERSE EVENT [None]
  - DIZZINESS [None]
  - FATIGUE [None]
  - HEADACHE [None]
  - HYPOTENSION [None]
  - PAIN [None]
  - SINUSITIS [None]
